FAERS Safety Report 9377073 (Version 1)
Quarter: 2013Q3

REPORT INFORMATION
  Report Type: Spontaneous
  Country: FR (occurrence: FR)
  Receive Date: 20130701
  Receipt Date: 20130701
  Transmission Date: 20140515
  Serious: No
  Sender: FDA-Public Use
  Company Number: FR-JNJFOC-20130611377

PATIENT
  Age: 8 Decade
  Sex: Female

DRUGS (3)
  1. DUROGESIC [Suspect]
     Indication: CANCER PAIN
     Route: 062
  2. DUROGESIC [Suspect]
     Indication: CANCER PAIN
     Route: 062
  3. DUROGESIC [Suspect]
     Indication: CANCER PAIN
     Route: 062

REACTIONS (1)
  - Inappropriate schedule of drug administration [Unknown]
